FAERS Safety Report 9366548 (Version 2)
Quarter: 2013Q3

REPORT INFORMATION
  Report Type: Spontaneous
  Country: US (occurrence: US)
  Receive Date: 20130625
  Receipt Date: 20130801
  Transmission Date: 20140515
  Serious: No
  Sender: FDA-Public Use
  Company Number: US-PFIZER INC-2013185014

PATIENT
  Age: 66 Year
  Sex: Female

DRUGS (1)
  1. INLYTA [Suspect]
     Dosage: 5 MG, 2X/DAY (BID)
     Route: 048
     Dates: start: 201305

REACTIONS (3)
  - Alopecia [Unknown]
  - Pruritus [Unknown]
  - Gingival pain [Unknown]
